FAERS Safety Report 21065241 (Version 1)
Quarter: 2022Q3

REPORT INFORMATION
  Report Type: Spontaneous
  Country: US (occurrence: None)
  Receive Date: 20220711
  Receipt Date: 20220711
  Transmission Date: 20221027
  Serious: Yes (Other)
  Sender: FDA-Public Use
  Company Number: None

PATIENT
  Age: 78 Year
  Sex: Female
  Weight: 51.3 kg

DRUGS (14)
  1. REVLIMID [Suspect]
     Active Substance: LENALIDOMIDE
     Indication: Plasma cell myeloma
     Dosage: FREQUENCY : DAILY;?
     Route: 048
     Dates: start: 20190808
  2. ALPRAZOLAM [Concomitant]
  3. BONIVA [Concomitant]
  4. CARVEDILOL [Concomitant]
  5. CYMBALTA [Concomitant]
  6. IMODIUM A-D [Concomitant]
  7. LOSARTAN [Concomitant]
  8. MELATONIN [Concomitant]
  9. ONDANSETRON HCL [Concomitant]
  10. TIZANIDINE HCL [Concomitant]
  11. TYLENOL EXTRA STRENGTH [Concomitant]
  12. VALTREX [Concomitant]
  13. VITAMIN B [Concomitant]
  14. VITAMIN D3 [Concomitant]

REACTIONS (1)
  - Diarrhoea [None]
